FAERS Safety Report 5279111-7 (Version None)
Quarter: 2007Q1

REPORT INFORMATION
  Report Type: 
  Country: None (occurrence: None)
  Receive Date: 20070327
  Receipt Date: 20070327
  Transmission Date: 20070707
  Serious: Yes (Other)
  Sender: FDA-Public Use
  Company Number: None

PATIENT
  Sex: Female

DRUGS (3)
  1. REVLIMID [Suspect]
     Indication: MULTIPLE MYELOMA
     Dosage: 25MG DAILY FOR 21 DAYS PO
     Route: 048
     Dates: start: 20061120, end: 20070322
  2. DEXAMETHASONE [Concomitant]
  3. VICODIN [Concomitant]

REACTIONS (1)
  - PANCYTOPENIA [None]
